FAERS Safety Report 9860813 (Version 1)
Quarter: 2014Q1

REPORT INFORMATION
  Report Type: Spontaneous
  Country: US (occurrence: US)
  Receive Date: 20140202
  Receipt Date: 20140202
  Transmission Date: 20141002
  Serious: No
  Sender: FDA-Public Use
  Company Number: US-ALLERGAN-1301851US

PATIENT
  Age: 61 Year
  Sex: Female

DRUGS (6)
  1. BOTOX [Suspect]
     Indication: MIGRAINE
     Dosage: UNK UNK, SINGLE
     Route: 030
     Dates: start: 20130131, end: 20130131
  2. BOTOX [Suspect]
     Dosage: UNK, SINGLE
     Route: 030
     Dates: start: 201208, end: 201208
  3. LORAZAPAM [Concomitant]
     Indication: NAUSEA
     Dosage: 0.5 MG, BID
     Route: 048
  4. AXERT [Concomitant]
     Indication: MIGRAINE
     Dosage: 6.25 MG, PRN
     Route: 048
  5. REGLAN [Concomitant]
     Indication: NAUSEA
     Dosage: 2.5 MG, PRN
     Route: 048
  6. ALLEVE [Concomitant]
     Indication: MIGRAINE
     Dosage: UNK
     Route: 048

REACTIONS (7)
  - Sinus congestion [Unknown]
  - Pain [Unknown]
  - Decreased appetite [Unknown]
  - Pyrexia [Unknown]
  - Influenza [Not Recovered/Not Resolved]
  - Neck pain [Recovered/Resolved]
  - Muscular weakness [Recovered/Resolved]
